FAERS Safety Report 11845734 (Version 7)
Quarter: 2020Q3

REPORT INFORMATION
  Report Type: Report from Study
  Country: US (occurrence: US)
  Receive Date: 20151217
  Receipt Date: 20180116
  Transmission Date: 20201104
  Serious: Yes (Life-Threatening, Hospitalization)
  Sender: FDA-Public Use
  Company Number: US-JNJFOC-20151211584

PATIENT
  Age: 71 Year
  Sex: Female
  Weight: 71.67 kg

DRUGS (7)
  1. TRABECTEDIN [Suspect]
     Active Substance: TRABECTEDIN
     Indication: OVARIAN CANCER RECURRENT
     Dosage: CYCLES 1?2
     Route: 042
     Dates: start: 20151113, end: 20151204
  2. NEULASTA [Concomitant]
     Active Substance: PEGFILGRASTIM
     Route: 065
  3. DOXIL [Suspect]
     Active Substance: DOXORUBICIN HYDROCHLORIDE
     Route: 042
  4. CEFEPIME [Suspect]
     Active Substance: CEFEPIME HYDROCHLORIDE
     Indication: BACTERAEMIA
     Route: 065
  5. CEFEPIME [Suspect]
     Active Substance: CEFEPIME HYDROCHLORIDE
     Indication: NEUTROPENIA
     Route: 065
  6. DOXIL [Suspect]
     Active Substance: DOXORUBICIN HYDROCHLORIDE
     Indication: OVARIAN CANCER RECURRENT
     Dosage: CYCLES 1?2
     Route: 042
     Dates: start: 20151113, end: 20151204
  7. TRABECTEDIN [Suspect]
     Active Substance: TRABECTEDIN
     Route: 042

REACTIONS (5)
  - Thrombocytopenia [Recovered/Resolved]
  - Febrile neutropenia [Recovered/Resolved]
  - Enterobacter bacteraemia [Recovered/Resolved]
  - Neutropenia [Recovered/Resolved with Sequelae]
  - Seizure [Recovered/Resolved with Sequelae]

NARRATIVE: CASE EVENT DATE: 20151210
